FAERS Safety Report 5083430-7 (Version None)
Quarter: 2006Q3

REPORT INFORMATION
  Report Type: 
  Country: None (occurrence: None)
  Receive Date: 20060818
  Receipt Date: 20060808
  Transmission Date: 20061208
  Serious: Yes (Other)
  Sender: FDA-Public Use
  Company Number: PHEH2006US10153

PATIENT
  Age: 44 Year
  Sex: Female
  Weight: 63.038 kg

DRUGS (3)
  1. ZOMETA [Suspect]
     Indication: METASTASES TO BONE
     Dosage: 4 MG, QMO
     Dates: start: 20060406, end: 20060608
  2. GOSERELIN [Concomitant]
  3. FULVESTRANT [Concomitant]

REACTIONS (3)
  - HYPOAESTHESIA [None]
  - NUCLEAR MAGNETIC RESONANCE IMAGING ABNORMAL [None]
  - OSTEONECROSIS [None]
